FAERS Safety Report 22360940 (Version 1)
Quarter: 2023Q2

REPORT INFORMATION
  Report Type: Spontaneous
  Country: US (occurrence: None)
  Receive Date: 20230523
  Receipt Date: 20230523
  Transmission Date: 20230722
  Serious: Yes (Hospitalization)
  Sender: FDA-Public Use
  Company Number: None

PATIENT
  Age: 45 Year
  Sex: Male
  Weight: 95.66 kg

DRUGS (16)
  1. MESNEX [Suspect]
     Active Substance: MESNA
     Indication: Renal cancer
     Dosage: FREQUENCY : AS DIRECTED;?
     Route: 048
     Dates: start: 202301
  2. AMLODIPINE [Concomitant]
     Active Substance: AMLODIPINE BESYLATE
  3. ATROPINE SULFATE [Concomitant]
     Active Substance: ATROPINE SULFATE
  4. CALCIUM CARB-CHOLECALCIFEROL [Concomitant]
  5. CYCLOPHOSPHAMIDE [Concomitant]
  6. DEXAMETHASONE [Concomitant]
  7. FAMOTIDINE [Concomitant]
  8. FOSAPREPITANT [Concomitant]
     Active Substance: FOSAPREPITANT
  9. IRINOTECAN HCL [Concomitant]
  10. LISINOPRIL [Concomitant]
  11. LORAZEPAM [Concomitant]
  12. NEULASTA [Concomitant]
     Active Substance: PEGFILGRASTIM
  13. ONDANSETRON [Concomitant]
  14. PALONOSETRON [Concomitant]
  15. SODIUM CHLORIDE [Concomitant]
     Active Substance: SODIUM CHLORIDE
  16. VINCRISTINE [Concomitant]

REACTIONS (2)
  - Hospitalisation [None]
  - Therapy interrupted [None]
